FAERS Safety Report 20547281 (Version 4)
Quarter: 2025Q4

REPORT INFORMATION
  Report Type: Report from Study
  Country: US (occurrence: US)
  Receive Date: 20220303
  Receipt Date: 20251230
  Transmission Date: 20260118
  Serious: Yes (Hospitalization, Other)
  Sender: PFIZER
  Company Number: US-PFIZER INC-202200308347

PATIENT
  Age: 67 Year
  Sex: Female
  Weight: 90.72 kg

DRUGS (5)
  1. XELJANZ XR [Suspect]
     Active Substance: TOFACITINIB CITRATE
     Indication: Rheumatoid arthritis
     Dosage: 11 MG, 1X/DAY (ONE A DAY IN THE MORNING)
  2. DEPAKOTE [Concomitant]
     Active Substance: DIVALPROEX SODIUM
     Dosage: UNK
  3. LIPITOR [Concomitant]
     Active Substance: ATORVASTATIN CALCIUM
     Indication: Blood cholesterol abnormal
     Dosage: UNK
  4. VITAMINS [Concomitant]
     Active Substance: VITAMINS
     Dosage: UNK
  5. VITAMIN D NOS [Concomitant]
     Active Substance: CHOLECALCIFEROL\ERGOCALCIFEROL
     Dosage: UNK

REACTIONS (10)
  - Depression [Recovering/Resolving]
  - Self-destructive behaviour [Unknown]
  - Viral infection [Unknown]
  - Nasopharyngitis [Unknown]
  - Diarrhoea [Unknown]
  - Vomiting [Unknown]
  - Stress [Unknown]
  - Weight increased [Unknown]
  - Withdrawal syndrome [Unknown]
  - Body height decreased [Unknown]

NARRATIVE: CASE EVENT DATE: 20221001
